FAERS Safety Report 7018131-9 (Version None)
Quarter: 2010Q3

REPORT INFORMATION
  Report Type: 
  Country: None (occurrence: None)
  Receive Date: 20100927
  Receipt Date: 20100927
  Transmission Date: 20110219
  Serious: Yes (Life-Threatening, Hospitalization)
  Sender: FDA-Public Use
  Company Number: None

PATIENT
  Age: 68 Year
  Sex: Male
  Weight: 77.1115 kg

DRUGS (3)
  1. CISPLATIN [Suspect]
     Indication: OESOPHAGEAL ADENOCARCINOMA
     Dosage: 80MG/M2 Q28D IV
     Route: 042
     Dates: start: 20100802, end: 20100930
  2. FLUOROURACIL [Suspect]
     Indication: OESOPHAGEAL ADENOCARCINOMA
     Dosage: 1000MG/M2/DAY Q28 OVER 96 HR IV
     Route: 042
     Dates: start: 20100802, end: 20100903
  3. PANITUMUMAB [Concomitant]

REACTIONS (12)
  - ATELECTASIS [None]
  - ATRIAL FIBRILLATION [None]
  - CHEST PAIN [None]
  - DEHYDRATION [None]
  - DIALYSIS [None]
  - ENTEROCOLITIS INFECTIOUS [None]
  - HYPERGLYCAEMIA [None]
  - HYPOTENSION [None]
  - PANCYTOPENIA [None]
  - RENAL FAILURE ACUTE [None]
  - SEPSIS [None]
  - TACHYCARDIA [None]
